FAERS Safety Report 12611009 (Version 3)
Quarter: 2016Q4

REPORT INFORMATION
  Report Type: Spontaneous
  Country: US (occurrence: US)
  Receive Date: 20160801
  Receipt Date: 20161005
  Transmission Date: 20170207
  Serious: Yes (Hospitalization, Other)
  Sender: FDA-Public Use
  Company Number: US-PFIZER INC-2016360587

PATIENT
  Age: 50 Year
  Sex: Female
  Weight: 81 kg

DRUGS (8)
  1. GABAPENTIN. [Suspect]
     Active Substance: GABAPENTIN
     Indication: NERVE INJURY
     Dosage: 400 MG, 3X/DAY
     Dates: start: 198811
  2. GABAPENTIN. [Suspect]
     Active Substance: GABAPENTIN
     Indication: SENSORY LOSS
  3. SIMVASTATIN. [Concomitant]
     Active Substance: SIMVASTATIN
     Indication: BLOOD CHOLESTEROL ABNORMAL
     Dosage: 10 MG, 1X/DAY, (AT BEDTIME)
     Dates: start: 2012
  4. BACLOFEN. [Concomitant]
     Active Substance: BACLOFEN
     Indication: MUSCLE SPASMS
     Dosage: 10 MG, TWO IN THE MORNING, ONE IN THE AFTERNOON
     Dates: start: 1988
  5. KEFLEX [Concomitant]
     Active Substance: CEPHALEXIN
     Indication: URETERAL CATHETERISATION
     Dosage: 250 MG, AS NEEDED
     Dates: start: 1988
  6. NEURONTIN [Suspect]
     Active Substance: GABAPENTIN
     Indication: NERVE INJURY
     Dosage: 300 MG, 3X/DAY
     Dates: start: 1988
  7. GABAPENTIN. [Suspect]
     Active Substance: GABAPENTIN
     Indication: NEURALGIA
  8. KEFLEX [Concomitant]
     Active Substance: CEPHALEXIN
     Indication: CYSTITIS

REACTIONS (7)
  - Lichen planus [Not Recovered/Not Resolved]
  - Tooth loss [Not Recovered/Not Resolved]
  - Choriocarcinoma [Unknown]
  - Autoimmune disorder [Not Recovered/Not Resolved]
  - Gingival recession [Not Recovered/Not Resolved]
  - Product use issue [Not Recovered/Not Resolved]
  - Benign hydatidiform mole [Recovered/Resolved]

NARRATIVE: CASE EVENT DATE: 1988
